FAERS Safety Report 8058644-4 (Version None)
Quarter: 2012Q1

REPORT INFORMATION
  Report Type: 
  Country: None (occurrence: None)
  Receive Date: 20120113
  Receipt Date: 20120110
  Transmission Date: 20120608
  Serious: Yes (Death)
  Sender: FDA-Public Use
  Company Number: 1000026982

PATIENT
  Age: 57 Year
  Sex: Female

DRUGS (9)
  1. DILTIAZEM HYDROCHLORIDE [Suspect]
  2. DIPHENHYDRAMINE HCL [Suspect]
  3. METHOTREXATE [Suspect]
  4. FLUOXETINE [Suspect]
  5. VENLAFAXINE [Suspect]
  6. CLONAZEPAM [Suspect]
  7. GABAPENTIN [Suspect]
  8. ANTIMALARIALS (ANTMALARIALS) [Suspect]
  9. BACLOFEN [Suspect]

REACTIONS (3)
  - CARDIAC ARREST [None]
  - COMPLETED SUICIDE [None]
  - RESPIRATORY ARREST [None]
